FAERS Safety Report 4681295-6 (Version None)
Quarter: 2005Q2

REPORT INFORMATION
  Report Type: 
  Country: None (occurrence: None)
  Receive Date: 20050603
  Receipt Date: 20050524
  Transmission Date: 20051028
  Serious: Yes (Disabling)
  Sender: FDA-Public Use
  Company Number: AU-ROCHE-405777

PATIENT
  Age: 34 Year
  Sex: Female

DRUGS (1)
  1. XENICAL [Suspect]
     Indication: UNEVALUABLE EVENT
     Route: 048
     Dates: start: 20050518, end: 20050520

REACTIONS (8)
  - ABDOMINAL PAIN [None]
  - ABDOMINAL RIGIDITY [None]
  - ASTHENIA [None]
  - DIARRHOEA [None]
  - HEADACHE [None]
  - LETHARGY [None]
  - NAUSEA [None]
  - VOMITING [None]
